FAERS Safety Report 15910021 (Version 3)
Quarter: 2019Q1

REPORT INFORMATION
  Report Type: Report from Study
  Country: US (occurrence: US)
  Receive Date: 20190204
  Receipt Date: 20190301
  Transmission Date: 20190417
  Serious: Yes (Hospitalization, Other)
  Sender: FDA-Public Use
  Company Number: US-MALLINCKRODT-T201801586

PATIENT
  Sex: Male

DRUGS (6)
  1. REPOSITORY CORTICOTROPIN INJECTION [Suspect]
     Active Substance: CORTICOTROPIN
     Indication: NEPHROTIC SYNDROME
     Dosage: 40 UNITS/.5 ML, 2 TIMES PER WEEK  MONDAY/THURSDAY
     Route: 058
     Dates: start: 20180611, end: 2018
  2. INSULIN [Suspect]
     Active Substance: INSULIN NOS
     Indication: BLOOD GLUCOSE INCREASED
     Dosage: UNK
     Route: 065
  3. REPOSITORY CORTICOTROPIN INJECTION [Suspect]
     Active Substance: CORTICOTROPIN
     Indication: GLOMERULONEPHRITIS MEMBRANOUS
     Dosage: 40 UNITS/.5 ML, 2 TIMES PER WEEK  MONDAY/THURSDAY
     Route: 058
     Dates: start: 2018
  4. REPOSITORY CORTICOTROPIN INJECTION [Suspect]
     Active Substance: CORTICOTROPIN
     Indication: PROTEINURIA
     Dosage: 40 UNITS/.5 ML, 2 TIMES PER WEEK  MONDAY/THURSDAY
     Route: 058
  5. REPOSITORY CORTICOTROPIN INJECTION [Suspect]
     Active Substance: CORTICOTROPIN
     Dosage: .5 ML, 2 TIMES PER WEEK  MONDAY/THURSDAY
     Route: 065
  6. REPOSITORY CORTICOTROPIN INJECTION [Suspect]
     Active Substance: CORTICOTROPIN
     Indication: GLOMERULONEPHROPATHY
     Dosage: 60 UNITS/0.75 ML, 2 TIMES PER WEEK  MONDAY/THURSDAY
     Route: 058

REACTIONS (7)
  - Accident [Unknown]
  - Fluid retention [Recovering/Resolving]
  - Ageusia [Unknown]
  - Type 2 diabetes mellitus [Not Recovered/Not Resolved]
  - Treatment noncompliance [Unknown]
  - Abdominal distension [Unknown]
  - Loss of consciousness [Unknown]

NARRATIVE: CASE EVENT DATE: 2018
